FAERS Safety Report 7982974-5 (Version None)
Quarter: 2011Q4

REPORT INFORMATION
  Report Type: 
  Country: None (occurrence: None)
  Receive Date: 20111215
  Receipt Date: 20111209
  Transmission Date: 20120403
  Serious: Yes (Hospitalization)
  Sender: FDA-Public Use
  Company Number: FR-B.I. PHARMACEUTICALS,INC./RIDGEFIELD-2011-FF-01169FF

PATIENT
  Age: 88 Year
  Sex: Female

DRUGS (1)
  1. PRADAXA [Suspect]
     Dosage: 110 MG
     Route: 048
     Dates: start: 20111005, end: 20111103

REACTIONS (4)
  - PURPURA [None]
  - GENERALISED ERYTHEMA [None]
  - ENANTHEMA [None]
  - PRURITUS [None]
